FAERS Safety Report 8196545-1 (Version None)
Quarter: 2012Q1

REPORT INFORMATION
  Report Type: 
  Country: None (occurrence: None)
  Receive Date: 20120309
  Receipt Date: 20120229
  Transmission Date: 20120608
  Serious: Yes (Hospitalization, Other)
  Sender: FDA-Public Use
  Company Number: FR-BRISTOL-MYERS SQUIBB COMPANY-16429995

PATIENT
  Age: 62 Year
  Sex: Male

DRUGS (3)
  1. PROGRAF [Suspect]
     Dosage: FORMULATION: CAPSULE
     Route: 048
     Dates: start: 20100101
  2. GLUCOPHAGE [Suspect]
     Route: 048
     Dates: start: 20100101
  3. MYCOPHENOLATE MOFETIL (CELLCEPT) [Suspect]
     Dosage: FORMULATION: POWDER + SOLVENT
     Route: 048
     Dates: start: 20100101

REACTIONS (2)
  - RENAL FAILURE [None]
  - HYPERKALAEMIA [None]
